FAERS Safety Report 25995853 (Version 1)
Quarter: 2025Q4

REPORT INFORMATION
  Report Type: Spontaneous
  Country: EU (occurrence: EU)
  Receive Date: 20251104
  Receipt Date: 20251104
  Transmission Date: 20260117
  Serious: Yes (Other)
  Sender: MACLEODS
  Company Number: EU-MLMSERVICE-20251016-PI677139-00201-1

PATIENT

DRUGS (3)
  1. LIDOCAINE [Suspect]
     Active Substance: LIDOCAINE
     Indication: Haemorrhoids
     Dosage: 3-4 TIMES DAILY OVER THE PAST 2 MONTHS
     Route: 061
  2. ENALAPRIL [Concomitant]
     Active Substance: ENALAPRIL
     Indication: Hypertension
     Route: 065
  3. ATORVASTATIN [Concomitant]
     Active Substance: ATORVASTATIN
     Indication: Hypercholesterolaemia
     Route: 065

REACTIONS (2)
  - Anal ulcer [Recovered/Resolved]
  - Prescription drug used without a prescription [Recovered/Resolved]
